FAERS Safety Report 5482088-2 (Version None)
Quarter: 2007Q4

REPORT INFORMATION
  Report Type: 
  Country: None (occurrence: None)
  Receive Date: 20071011
  Receipt Date: 20071004
  Transmission Date: 20080405
  Serious: Yes (Other)
  Sender: FDA-Public Use
  Company Number: PHEH2007US05720

PATIENT
  Age: 53 Year
  Sex: Female

DRUGS (15)
  1. ZELNORM [Suspect]
     Indication: IMPAIRED GASTRIC EMPTYING
     Dosage: 6 MG, BID
     Route: 048
     Dates: start: 20060801, end: 20070419
  2. SYNTHROID [Concomitant]
     Indication: HYPOTHYROIDISM
     Dosage: 75 MG, QD
     Route: 048
     Dates: start: 20060801
  3. CYTOMEL [Concomitant]
     Indication: HYPOTHYROIDISM
     Dosage: 5 MG, TID
     Route: 048
     Dates: start: 20060801
  4. PROPRANOLOL [Concomitant]
     Indication: HYPERTENSION
     Dosage: 20 MG, BID
     Route: 048
     Dates: start: 20060801
  5. ESTROGEN NOS [Concomitant]
     Indication: HORMONE REPLACEMENT THERAPY
     Dosage: 0.5 UNK, QD
     Route: 048
     Dates: start: 20060101
  6. PROZAC [Concomitant]
     Indication: DEPRESSION
     Dosage: 20 MG, QD
     Route: 048
     Dates: start: 20060501
  7. PREVACID [Concomitant]
     Indication: GASTROOESOPHAGEAL REFLUX DISEASE
     Dosage: 30 MG, QD
     Route: 048
     Dates: start: 20060801
  8. INDERAL [Concomitant]
     Dosage: UNK, QD
     Route: 048
     Dates: start: 19870101
  9. GLUCOPHAGE - SLOW RELEASE [Concomitant]
     Indication: DIABETES MELLITUS
     Dosage: 500 MG, QD
     Route: 048
     Dates: start: 20060801
  10. OMEGA 3 FISH OIL [Concomitant]
  11. MULTI-VIT [Concomitant]
  12. CALCIUM D SANDOZ [Concomitant]
     Dosage: 500 MG, UNK
  13. ZINC [Concomitant]
     Dosage: 25 MG, UNK
  14. MAGNESIUM SULFATE [Concomitant]
  15. VITAMIN E [Concomitant]

REACTIONS (17)
  - ANXIETY [None]
  - ASTHENIA [None]
  - BLOOD GLUCOSE INCREASED [None]
  - BLOOD TRIGLYCERIDES INCREASED [None]
  - CONDITION AGGRAVATED [None]
  - DIABETES MELLITUS [None]
  - DYSARTHRIA [None]
  - DYSPEPSIA [None]
  - FAMILY STRESS [None]
  - GASTROOESOPHAGEAL REFLUX DISEASE [None]
  - HEADACHE [None]
  - HEART RATE INCREASED [None]
  - HEMIPARESIS [None]
  - HYPOAESTHESIA [None]
  - HYSTERECTOMY [None]
  - PALPITATIONS [None]
  - TRANSIENT ISCHAEMIC ATTACK [None]
